FAERS Safety Report 23665447 (Version 1)
Quarter: 2024Q1

REPORT INFORMATION
  Report Type: Spontaneous
  Country: US (occurrence: US)
  Receive Date: 20240323
  Receipt Date: 20240323
  Transmission Date: 20240410
  Serious: No
  Sender: FDA-Public Use
  Company Number: US-TEVA-VS-3147407

PATIENT

DRUGS (8)
  1. AMOXICILLIN [Suspect]
     Active Substance: AMOXICILLIN
     Indication: Product used for unknown indication
     Dosage: 4 CAPSULES BY MOUTH
     Route: 048
  2. ESTRING [Suspect]
     Active Substance: ESTRADIOL
     Indication: Oestrogen therapy
     Dosage: DOSAGE STRENGTH UNKNOWN; KEEP THE ESTRING IN FOR 3 ?MONTHS, PLACED IN VAGINA
     Route: 065
     Dates: start: 2023
  3. WELLBUTRIN [Concomitant]
     Active Substance: BUPROPION HYDROCHLORIDE
     Indication: Product used for unknown indication
     Dosage: 300MG ONE TABLET DAILY BY MOUTH
     Route: 048
  4. INDERAL [Concomitant]
     Active Substance: PROPRANOLOL HYDROCHLORIDE
     Indication: Blood pressure measurement
     Dosage: 80MG CAPSULE ONCE A DAY BY MOUTH
     Route: 048
  5. DESYREL [Concomitant]
     Active Substance: TRAZODONE HYDROCHLORIDE
     Indication: Insomnia
     Dosage: 50MG TWO TABLETS AT NIGHT BY MOUTH
     Route: 048
  6. PRISTIQ EXTENDED-RELEASE [Concomitant]
     Active Substance: DESVENLAFAXINE SUCCINATE
     Indication: Depression
     Dosage: 100MG TWO TABLETS A DAY BY MOUTH
     Route: 048
  7. MOBIC [Concomitant]
     Active Substance: MELOXICAM
     Indication: Arthritis
     Dosage: 15MG ONE TABLET DAY BY MOUTH
     Route: 048
  8. ADDERALL [Concomitant]
     Active Substance: AMPHETAMINE ASPARTATE\AMPHETAMINE SULFATE\DEXTROAMPHETAMINE SACCHARATE\DEXTROAMPHETAMINE SULFATE
     Indication: Attention deficit hyperactivity disorder
     Dosage: 20MG ONE TABLET TWICE A DAY BY MOUTH
     Route: 048

REACTIONS (1)
  - Product dose omission issue [Not Recovered/Not Resolved]

NARRATIVE: CASE EVENT DATE: 20231201
